FAERS Safety Report 18517079 (Version 1)
Quarter: 2020Q4

REPORT INFORMATION
  Report Type: Spontaneous
  Country: US (occurrence: US)
  Receive Date: 20201117
  Receipt Date: 20201117
  Transmission Date: 20210114
  Serious: No
  Sender: FDA-Public Use
  Company Number: None

PATIENT
  Age: 77 Year
  Sex: Female
  Weight: 108.41 kg

DRUGS (2)
  1. ORENCIA [Suspect]
     Active Substance: ABATACEPT
     Indication: RHEUMATOID ARTHRITIS
     Dosage: AS DIRECTED
     Route: 058
     Dates: start: 201806
  2. ORENCIA [Suspect]
     Active Substance: ABATACEPT
     Indication: SENILE OSTEOPOROSIS
     Dosage: AS DIRECTED
     Route: 058
     Dates: start: 201806

REACTIONS (1)
  - Skin cancer [None]
